FAERS Safety Report 7249865-9 (Version None)
Quarter: 2011Q1

REPORT INFORMATION
  Report Type: 
  Country: None (occurrence: None)
  Receive Date: 20110128
  Receipt Date: 20100629
  Transmission Date: 20110831
  Serious: No
  Sender: FDA-Public Use
  Company Number: A0869319A

PATIENT
  Age: 59 Year
  Sex: Female

DRUGS (2)
  1. CHANTIX [Suspect]
     Indication: SMOKING CESSATION THERAPY
     Route: 048
  2. WELLBUTRIN [Suspect]
     Indication: SMOKING CESSATION THERAPY
     Route: 048

REACTIONS (4)
  - DEPRESSION [None]
  - POOR QUALITY SLEEP [None]
  - ANXIETY [None]
  - ABNORMAL DREAMS [None]
